FAERS Safety Report 10131849 (Version 2)
Quarter: 2014Q2

REPORT INFORMATION
  Report Type: Spontaneous
  Country: CN (occurrence: CN)
  Receive Date: 20140428
  Receipt Date: 20140517
  Transmission Date: 20141212
  Serious: Yes (Hospitalization)
  Sender: FDA-Public Use
  Company Number: CN-JNJFOC-20140410223

PATIENT
  Age: 50 Year
  Sex: Female
  Weight: 50 kg

DRUGS (2)
  1. TYLENOL COLD [Suspect]
     Indication: PYREXIA
     Route: 048
     Dates: start: 20121220, end: 20121222
  2. TYLENOL COLD [Suspect]
     Indication: NASOPHARYNGITIS
     Route: 048
     Dates: start: 20121220, end: 20121222

REACTIONS (1)
  - Dermatitis [Recovered/Resolved]
